FAERS Safety Report 4463017-7 (Version None)
Quarter: 2004Q3

REPORT INFORMATION
  Report Type: 
  Country: None (occurrence: None)
  Receive Date: 20040927
  Receipt Date: 20040916
  Transmission Date: 20050211
  Serious: Yes (Hospitalization, Disabling)
  Sender: FDA-Public Use
  Company Number: 2004234162SE

PATIENT
  Age: 89 Year
  Sex: Male

DRUGS (2)
  1. CIPROFLOXACIN [Suspect]
     Indication: BALANITIS
     Dates: start: 20040406, end: 20040415
  2. DEPO-MEDROL [Suspect]
     Indication: SURGERY
     Dates: start: 20030901

REACTIONS (1)
  - TENDON RUPTURE [None]
